FAERS Safety Report 22535961 (Version 1)
Quarter: 2023Q2

REPORT INFORMATION
  Report Type: Spontaneous
  Country: US (occurrence: US)
  Receive Date: 20230608
  Receipt Date: 20230608
  Transmission Date: 20230722
  Serious: No
  Sender: FDA-Public Use
  Company Number: US-009507513-2306USA002427

PATIENT
  Sex: Male

DRUGS (12)
  1. VERQUVO [Suspect]
     Active Substance: VERICIGUAT
     Indication: Myocardial infarction
     Dosage: 2.5 MILLIGRAM, QD
     Route: 048
     Dates: start: 20230324
  2. VERQUVO [Suspect]
     Active Substance: VERICIGUAT
     Indication: Cerebrovascular accident
  3. ASPIRIN [Concomitant]
     Active Substance: ASPIRIN
     Dosage: LOW DOSE
  4. ATORVASTATIN [Concomitant]
     Active Substance: ATORVASTATIN
  5. LIPITOR [Concomitant]
     Active Substance: ATORVASTATIN CALCIUM
  6. FARXIGA [Concomitant]
     Active Substance: DAPAGLIFLOZIN PROPANEDIOL
  7. LISINOPRIL [Concomitant]
     Active Substance: LISINOPRIL
  8. ELIQUIS [Concomitant]
     Active Substance: APIXABAN
  9. ZOLOFT [Concomitant]
     Active Substance: SERTRALINE HYDROCHLORIDE
  10. TORSEMIDE [Concomitant]
     Active Substance: TORSEMIDE
  11. METRONIDAZOLE [Concomitant]
     Active Substance: METRONIDAZOLE
  12. MELATONIN [Concomitant]
     Active Substance: MELATONIN

REACTIONS (2)
  - Dyspnoea [Not Recovered/Not Resolved]
  - Product dose omission issue [Unknown]

NARRATIVE: CASE EVENT DATE: 20230101
